FAERS Safety Report 17287774 (Version 1)
Quarter: 2020Q1

REPORT INFORMATION
  Report Type: Spontaneous
  Country: US (occurrence: US)
  Receive Date: 20200120
  Receipt Date: 20200120
  Transmission Date: 20200409
  Serious: Yes (Other)
  Sender: FDA-Public Use
  Company Number: US-INSMED, INC.-US-INS-20-00064

PATIENT
  Age: 59 Year
  Sex: Female

DRUGS (9)
  1. NITRIC OXIDE. [Suspect]
     Active Substance: NITRIC OXIDE
     Indication: MYCOBACTERIAL INFECTION
  2. NITRIC OXIDE. [Suspect]
     Active Substance: NITRIC OXIDE
     Indication: BRONCHIECTASIS
  3. CLOFAZIMINE [Suspect]
     Active Substance: CLOFAZIMINE
     Indication: MYCOBACTERIAL INFECTION
  4. CEFOXITIN [Suspect]
     Active Substance: CEFOXITIN SODIUM
     Indication: BRONCHIECTASIS
     Route: 042
  5. AZITHROMYCIN ANHYDROUS. [Suspect]
     Active Substance: AZITHROMYCIN ANHYDROUS
     Indication: MYCOBACTERIAL INFECTION
  6. AMIKACIN. [Suspect]
     Active Substance: AMIKACIN
     Route: 055
  7. CEFOXITIN [Suspect]
     Active Substance: CEFOXITIN SODIUM
     Indication: MYCOBACTERIAL INFECTION
  8. CLOFAZIMINE [Suspect]
     Active Substance: CLOFAZIMINE
     Indication: BRONCHIECTASIS
  9. AZITHROMYCIN ANHYDROUS. [Suspect]
     Active Substance: AZITHROMYCIN ANHYDROUS
     Indication: BRONCHIECTASIS

REACTIONS (2)
  - Adverse drug reaction [Unknown]
  - Off label use [Unknown]
